FAERS Safety Report 7020801-3 (Version None)
Quarter: 2010Q3

REPORT INFORMATION
  Report Type: 
  Country: None (occurrence: None)
  Receive Date: 20100929
  Receipt Date: 20100924
  Transmission Date: 20110219
  Serious: Yes (Hospitalization, Other)
  Sender: FDA-Public Use
  Company Number: US-CEPHALON-2010005064

PATIENT
  Sex: Female

DRUGS (4)
  1. TREANDA [Suspect]
     Indication: NON-HODGKIN'S LYMPHOMA STAGE IV
     Route: 041
     Dates: start: 20100714, end: 20100715
  2. RITUXAN [Concomitant]
     Indication: NON-HODGKIN'S LYMPHOMA
     Dates: start: 20100706, end: 20100713
  3. LEXAPRO [Concomitant]
     Dates: end: 20100825
  4. ALLOPURINOL [Concomitant]
     Dates: start: 20100706

REACTIONS (12)
  - ANAEMIA [None]
  - ASPERGILLOSIS [None]
  - CANDIDIASIS [None]
  - CONTUSION [None]
  - DYSPNOEA [None]
  - FATIGUE [None]
  - FEBRILE NEUTROPENIA [None]
  - NEUTROPENIA [None]
  - PANCYTOPENIA [None]
  - PETECHIAE [None]
  - RASH PRURITIC [None]
  - THROMBOCYTOPENIA [None]
